FAERS Safety Report 26046994 (Version 1)
Quarter: 2025Q4

REPORT INFORMATION
  Report Type: Spontaneous
  Country: US (occurrence: US)
  Receive Date: 20251114
  Receipt Date: 20251114
  Transmission Date: 20260118
  Serious: Yes (Hospitalization)
  Sender: LUNDBECK
  Company Number: US-LUNDBECK-DKLU4021501

PATIENT
  Age: 4 Year
  Sex: Male
  Weight: 14.515 kg

DRUGS (3)
  1. SABRIL [Suspect]
     Active Substance: VIGABATRIN
     Indication: Disease susceptibility
     Dosage: 1000 MILLIGRAM
     Dates: start: 202503
  2. SABRIL [Suspect]
     Active Substance: VIGABATRIN
     Indication: Epilepsy
  3. EPIDIOLEX [Concomitant]
     Active Substance: CANNABIDIOL
     Indication: Epilepsy
     Route: 048

REACTIONS (2)
  - Pneumonia [Unknown]
  - Weight increased [Unknown]

NARRATIVE: CASE EVENT DATE: 20251027
